FAERS Safety Report 5903654-3 (Version None)
Quarter: 2008Q3

REPORT INFORMATION
  Report Type: 
  Country: None (occurrence: None)
  Receive Date: 20080930
  Receipt Date: 20080916
  Transmission Date: 20090109
  Serious: Yes (Other)
  Sender: FDA-Public Use
  Company Number: US-ELI_LILLY_AND_COMPANY-US200809003529

PATIENT
  Sex: Male

DRUGS (4)
  1. BYETTA [Suspect]
     Indication: TYPE 2 DIABETES MELLITUS
     Dosage: 5 UG, 2/D
     Route: 058
     Dates: start: 20070301, end: 20070401
  2. BYETTA [Suspect]
     Dosage: 10 UG, 2/D
     Route: 058
     Dates: start: 20070401
  3. GLUCOPHAGE [Concomitant]
     Dosage: 2000 MG, UNKNOWN
  4. ACTOS [Concomitant]
     Dosage: 30 MG, DAILY (1/D)

REACTIONS (4)
  - CARTILAGE INJURY [None]
  - KNEE ARTHROPLASTY [None]
  - MENISCUS LESION [None]
  - WEIGHT DECREASED [None]
